FAERS Safety Report 6278214-8 (Version None)
Quarter: 2009Q3

REPORT INFORMATION
  Report Type: 
  Country: None (occurrence: None)
  Receive Date: 20090722
  Receipt Date: 20090715
  Transmission Date: 20100115
  Serious: Yes (Other)
  Sender: FDA-Public Use
  Company Number: US-ASTRAZENECA-2007UW14370

PATIENT
  Age: 19335 Day
  Sex: Male
  Weight: 102.1 kg

DRUGS (2)
  1. SEROQUEL [Suspect]
     Indication: DEPRESSION
     Route: 048
     Dates: start: 20020905, end: 20060501
  2. ZYPREXA [Concomitant]
     Dates: start: 20001101

REACTIONS (2)
  - ARTHROPATHY [None]
  - TYPE 2 DIABETES MELLITUS [None]
